FAERS Safety Report 5215358-3 (Version None)
Quarter: 2007Q1

REPORT INFORMATION
  Report Type: 
  Country: None (occurrence: None)
  Receive Date: 20070116
  Receipt Date: 20070108
  Transmission Date: 20070707
  Serious: Yes (Hospitalization)
  Sender: FDA-Public Use
  Company Number: 2006BI011569

PATIENT
  Age: 51 Year
  Sex: Female

DRUGS (5)
  1. AVONEX [Suspect]
     Indication: MULTIPLE SCLEROSIS
     Dosage: 30 UG; QW; IM
     Route: 030
     Dates: start: 20060701, end: 20060801
  2. SIMVAHEXAL [Concomitant]
  3. ZOLOFT [Concomitant]
  4. PARACETAMOL [Concomitant]
  5. IMBUN [Concomitant]

REACTIONS (14)
  - ACUTE HEPATIC FAILURE [None]
  - ANTINUCLEAR ANTIBODY POSITIVE [None]
  - AUTOIMMUNE DISORDER [None]
  - CONDITION AGGRAVATED [None]
  - CYTOMEGALOVIRUS ANTIBODY POSITIVE [None]
  - EPSTEIN-BARR VIRUS ANTIBODY POSITIVE [None]
  - GENERAL PHYSICAL HEALTH DETERIORATION [None]
  - HEPATIC ENCEPHALOPATHY [None]
  - HEPATIC NECROSIS [None]
  - INFLUENZA LIKE ILLNESS [None]
  - LIVER TRANSPLANT [None]
  - MULTIPLE SCLEROSIS [None]
  - SOMNOLENCE [None]
  - VARICELLA ZOSTER VIRUS SEROLOGY POSITIVE [None]
